FAERS Safety Report 8835491 (Version 2)
Quarter: 2013Q1

REPORT INFORMATION
  Report Type: Spontaneous
  Country: US (occurrence: US)
  Receive Date: 20121011
  Receipt Date: 20130107
  Transmission Date: 20140127
  Serious: Yes (Hospitalization, Other)
  Sender: FDA-Public Use
  Company Number: PHEH2012US016526

PATIENT
  Age: 30 Year
  Sex: Female

DRUGS (3)
  1. EXTAVIA [Suspect]
     Indication: MULTIPLE SCLEROSIS
     Dosage: 0.062 MG, QOD
     Route: 058
     Dates: start: 20120809
  2. EXTAVIA [Suspect]
     Dosage: 0.25 MG, QOD
     Route: 058
     Dates: start: 20120817
  3. STEROIDS NOS [Suspect]

REACTIONS (13)
  - Vertigo [Unknown]
  - Gait disturbance [Unknown]
  - Fall [Unknown]
  - Fluid retention [Unknown]
  - Feeling of body temperature change [Unknown]
  - Muscular weakness [Unknown]
  - Hypoaesthesia [Unknown]
  - Injection site swelling [Not Recovered/Not Resolved]
  - Injection site erythema [Recovering/Resolving]
  - Injection site pain [Not Recovered/Not Resolved]
  - Injection site urticaria [Not Recovered/Not Resolved]
  - Injection site reaction [Unknown]
  - Injection site pruritus [Not Recovered/Not Resolved]
